FAERS Safety Report 7775833-4 (Version None)
Quarter: 2011Q3

REPORT INFORMATION
  Report Type: 
  Country: None (occurrence: None)
  Receive Date: 20110923
  Receipt Date: 20110916
  Transmission Date: 20111222
  Serious: Yes (Hospitalization, Other)
  Sender: FDA-Public Use
  Company Number: PHHO2011GB14828

PATIENT
  Sex: Female
  Weight: 112.6 kg

DRUGS (6)
  1. CITALOPRAM HYDROBROMIDE [Concomitant]
     Indication: DEPRESSION
     Dosage: 20 MG, QD
     Route: 048
     Dates: start: 20090101
  2. OXYCODONE HCL [Concomitant]
     Indication: MUSCLE SPASMS
     Dosage: 5/10 MG, PRN
     Route: 048
     Dates: start: 20101115, end: 20110830
  3. CARBAMAZEPINE [Concomitant]
     Indication: TRIGEMINAL NEURALGIA
     Dosage: 200 MG, PRN
     Route: 048
     Dates: start: 20080125
  4. ACETAMINOPHEN AND CODEINE PHOSPHATE [Concomitant]
     Indication: MUSCLE SPASMS
     Dosage: 30/500
     Route: 048
     Dates: start: 20050101
  5. FTY [Suspect]
     Indication: MULTIPLE SCLEROSIS
     Dosage: 0.5 MG, QD
     Route: 048
     Dates: start: 20110121, end: 20110902
  6. BACLOFEN [Concomitant]
     Indication: MUSCLE SPASMS
     Dosage: 10 MG, BID
     Route: 048
     Dates: start: 20110514

REACTIONS (4)
  - SINUSITIS [None]
  - LYMPHOPENIA [None]
  - PYELONEPHRITIS [None]
  - URINARY TRACT INFECTION [None]
